FAERS Safety Report 9891805 (Version 1)
Quarter: 2014Q1

REPORT INFORMATION
  Report Type: Spontaneous
  Country: IE (occurrence: IE)
  Receive Date: 20140212
  Receipt Date: 20140212
  Transmission Date: 20141002
  Serious: Yes (Other)
  Sender: FDA-Public Use
  Company Number: IE-PFIZER INC-2014038024

PATIENT
  Age: 72 Year
  Sex: Male

DRUGS (1)
  1. FELDENE [Suspect]

REACTIONS (1)
  - Skin discolouration [Recovered/Resolved]
